FAERS Safety Report 8088496-8 (Version None)
Quarter: 2012Q1

REPORT INFORMATION
  Report Type: 
  Country: None (occurrence: None)
  Receive Date: 20120128
  Receipt Date: 20110419
  Transmission Date: 20120608
  Serious: No
  Sender: FDA-Public Use
  Company Number: US-ABBOTT-11P-163-0719919-00

PATIENT
  Sex: Female
  Weight: 108.96 kg

DRUGS (6)
  1. HUMIRA [Suspect]
     Indication: SYSTEMIC LUPUS ERYTHEMATOSUS
     Dates: start: 20110413
  2. IBUPROFEN [Concomitant]
     Indication: PAIN
  3. CYMBALTA [Concomitant]
     Indication: PAIN
  4. VESICARE [Concomitant]
     Indication: URINARY INCONTINENCE
  5. SYNTHROID [Concomitant]
     Indication: HYPOTHYROIDISM
  6. NAPROXEN (ALEVE) [Concomitant]
     Indication: PAIN

REACTIONS (1)
  - DRUG INEFFECTIVE [None]
